FAERS Safety Report 7731114-6 (Version None)
Quarter: 2011Q3

REPORT INFORMATION
  Report Type: 
  Country: None (occurrence: None)
  Receive Date: 20110906
  Receipt Date: 20110906
  Transmission Date: 20111222
  Serious: Yes (Other)
  Sender: FDA-Public Use
  Company Number: None

PATIENT
  Sex: Female
  Weight: 60.781 kg

DRUGS (1)
  1. MIRENA [Suspect]
     Indication: CONTRACEPTION
     Dosage: ONE IUD
     Dates: start: 20100902, end: 20110903

REACTIONS (9)
  - MIGRAINE [None]
  - VULVOVAGINAL PAIN [None]
  - PAIN [None]
  - MENORRHAGIA [None]
  - BACK PAIN [None]
  - DEPRESSION [None]
  - WEIGHT INCREASED [None]
  - ACNE [None]
  - VAGINAL DISCHARGE [None]
